FAERS Safety Report 12221459 (Version 1)
Quarter: 2016Q1

REPORT INFORMATION
  Report Type: Spontaneous
  Country: US (occurrence: US)
  Receive Date: 20160330
  Receipt Date: 20160330
  Transmission Date: 20160526
  Serious: Yes (Hospitalization, Other)
  Sender: FDA-Public Use
  Company Number: US-DRREDDYS-USA/USA/16/0078285

PATIENT
  Age: 58 Year
  Sex: Male

DRUGS (3)
  1. TRIHEXYPHENIDYL [Suspect]
     Active Substance: TRIHEXYPHENIDYL
     Indication: BIPOLAR DISORDER
     Route: 065
  2. LITHIUM. [Interacting]
     Active Substance: LITHIUM
     Indication: BIPOLAR DISORDER
     Route: 065
  3. RISPERIDONE. [Interacting]
     Active Substance: RISPERIDONE
     Indication: BIPOLAR DISORDER
     Route: 065

REACTIONS (15)
  - Restlessness [Recovered/Resolved]
  - Ataxia [Recovering/Resolving]
  - Muscular weakness [Recovering/Resolving]
  - Dysarthria [Recovering/Resolving]
  - Rectal haemorrhage [Unknown]
  - Disorientation [Recovered/Resolved]
  - Intention tremor [Recovered/Resolved]
  - Neurotoxicity [Recovered/Resolved]
  - Haemoglobin decreased [Not Recovered/Not Resolved]
  - Drug interaction [Unknown]
  - Somnolence [Recovered/Resolved]
  - Delirium [Recovered/Resolved]
  - Headache [Unknown]
  - Confusional state [Recovered/Resolved]
  - Amnesia [Recovering/Resolving]
